FAERS Safety Report 6037808-5 (Version None)
Quarter: 2009Q1

REPORT INFORMATION
  Report Type: 
  Country: None (occurrence: None)
  Receive Date: 20090113
  Receipt Date: 20081219
  Transmission Date: 20090719
  Serious: Yes (Hospitalization)
  Sender: FDA-Public Use
  Company Number: 200826505GPV

PATIENT
  Age: 55 Year
  Sex: Male

DRUGS (5)
  1. CAMPATH [Suspect]
     Indication: ALLOGENIC BONE MARROW TRANSPLANTATION THERAPY
     Dosage: 10 MG QD
  2. FLUDARABINE PHOSPHATE [Suspect]
     Indication: ALLOGENIC BONE MARROW TRANSPLANTATION THERAPY
  3. MELPHALAN (MELPHALAN) [Concomitant]
  4. CYCLOSPORINE [Concomitant]
  5. PROPHYLAXIS [Concomitant]

REACTIONS (4)
  - EPSTEIN-BARR VIRUS ASSOCIATED LYMPHOPROLIFERATIVE DISORDER [None]
  - EPSTEIN-BARR VIRUS INFECTION [None]
  - LEUKAEMIA RECURRENT [None]
  - TONSILLITIS [None]
